FAERS Safety Report 13324965 (Version 1)
Quarter: 2017Q1

REPORT INFORMATION
  Report Type: Report from Study
  Country: CA (occurrence: CA)
  Receive Date: 20170310
  Receipt Date: 20170310
  Transmission Date: 20170428
  Serious: Yes (Hospitalization)
  Sender: FDA-Public Use
  Company Number: PHHO2017CA002088

PATIENT
  Age: 71 Year
  Sex: Male
  Weight: 77.1 kg

DRUGS (2)
  1. PAZOPANIB [Suspect]
     Active Substance: PAZOPANIB
     Dosage: 800 MG, QD
     Route: 048
     Dates: start: 20160317, end: 20160718
  2. PAZOPANIB [Suspect]
     Active Substance: PAZOPANIB
     Indication: CARCINOID TUMOUR
     Dosage: 800 MG, QD
     Route: 048
     Dates: start: 20141007, end: 20160229

REACTIONS (4)
  - Dizziness [Recovering/Resolving]
  - Syncope [Recovering/Resolving]
  - Headache [Recovering/Resolving]
  - Hypertension [Recovering/Resolving]

NARRATIVE: CASE EVENT DATE: 20160301
